FAERS Safety Report 24664280 (Version 2)
Quarter: 2024Q4

REPORT INFORMATION
  Report Type: Spontaneous
  Country: US (occurrence: US)
  Receive Date: 20241126
  Receipt Date: 20241129
  Transmission Date: 20250114
  Serious: Yes (Hospitalization)
  Sender: ASTELLAS
  Company Number: US-ASTELLAS-2024-AER-019288

PATIENT
  Age: 40 Year
  Sex: Male

DRUGS (4)
  1. TACROLIMUS [Interacting]
     Active Substance: TACROLIMUS
     Indication: Heart transplant
     Route: 065
     Dates: start: 2003
  2. PAXLOVID [Interacting]
     Active Substance: NIRMATRELVIR\RITONAVIR
     Indication: COVID-19
     Route: 065
  3. RIFAMPIN [Interacting]
     Active Substance: RIFAMPIN
     Indication: Toxicity to various agents
     Route: 065
  4. RAPAMYCIN [Concomitant]
     Active Substance: SIROLIMUS
     Indication: Heart transplant
     Route: 065
     Dates: start: 2003

REACTIONS (4)
  - Toxicity to various agents [Recovered/Resolved]
  - Drug interaction [Unknown]
  - COVID-19 [Unknown]
  - Drug interaction [Unknown]
